FAERS Safety Report 14180851 (Version 3)
Quarter: 2018Q3

REPORT INFORMATION
  Report Type: Spontaneous
  Country: US (occurrence: US)
  Receive Date: 20171110
  Receipt Date: 20180710
  Transmission Date: 20181010
  Serious: No
  Sender: FDA-Public Use
  Company Number: US-ACTELION-A-US2017-162300

PATIENT
  Age: 50 Year
  Sex: Female
  Weight: 68.27 kg

DRUGS (4)
  1. ADCIRCA [Concomitant]
     Active Substance: TADALAFIL
  2. OPSUMIT [Suspect]
     Active Substance: MACITENTAN
     Indication: PULMONARY HYPERTENSION
     Dosage: 10 MG, QD
     Route: 048
     Dates: end: 20171121
  3. TRACLEER [Suspect]
     Active Substance: BOSENTAN
     Indication: PULMONARY HYPERTENSION
     Dosage: 125 MG, BID
     Route: 048
  4. TYVASO [Concomitant]
     Active Substance: TREPROSTINIL

REACTIONS (7)
  - Menopausal symptoms [Unknown]
  - Weight increased [Unknown]
  - Fat tissue increased [Unknown]
  - Weight loss poor [Unknown]
  - Therapy non-responder [Unknown]
  - Insomnia [Unknown]
  - Cardiac septal defect [Unknown]
